FAERS Safety Report 9500297 (Version 1)
Quarter: 2013Q1

REPORT INFORMATION
  Report Type: Spontaneous
  Country: US (occurrence: None)
  Receive Date: 20130107
  Receipt Date: 20130107
  Transmission Date: 20140127
  Serious: No
  Sender: FDA-Public Use
  Company Number: PHEH2012US022838

PATIENT
  Age: 46 Year
  Sex: Female
  Weight: 54 kg

DRUGS (9)
  1. GILENYA (FINGOLIMOD) CAPSULE [Suspect]
     Route: 048
  2. LUNESTA (ESZOPICLONE) [Concomitant]
  3. CYMBALTA (DULOXETINE HYDROCHLORIDE) [Concomitant]
  4. NEURONTIN (GABAPENTIN) [Concomitant]
  5. DENTRIUM (DANTROLENE SODIUM) [Concomitant]
  6. BACLOFEN (BACLOFEN) [Concomitant]
  7. ZANTAC (RANITIDINE HYDROCHLORIDE) [Concomitant]
  8. WELLBUTRIN XL (BUPROPION HYDROCHLORIDE) [Concomitant]
  9. ADDERALL (AMFETAMINE ASPARTATE, AMFETAMINE SULFATE, DEXAMFETAMINE SACCHARATE, DEXAMFETAMAINE SULFATE) TABLET [Concomitant]

REACTIONS (2)
  - Influenza like illness [None]
  - Dizziness [None]
